FAERS Safety Report 4513285-8 (Version None)
Quarter: 2004Q4

REPORT INFORMATION
  Report Type: 
  Country: None (occurrence: None)
  Receive Date: 20041124
  Receipt Date: 20041116
  Transmission Date: 20050328
  Serious: Yes (Hospitalization, Other)
  Sender: FDA-Public Use
  Company Number: HQWYE482116NOV04

PATIENT
  Age: 72 Year
  Sex: Male

DRUGS (4)
  1. ANCARON (AMIODARONE, TABLET) [Suspect]
     Indication: ATRIAL FIBRILLATION
     Dosage: 200 MG 1X PER 1 DAY; ORAL
     Route: 048
     Dates: start: 20040916, end: 20040928
  2. CARVEDILOL [Concomitant]
  3. DIGOXIN [Concomitant]
  4. HANP (CARPERITIDE) [Concomitant]

REACTIONS (1)
  - DECREASED APPETITE [None]
